FAERS Safety Report 5160825-4 (Version None)
Quarter: 2006Q4

REPORT INFORMATION
  Report Type: 
  Country: None (occurrence: None)
  Receive Date: 20061121
  Receipt Date: 20061107
  Transmission Date: 20070319
  Serious: Yes (Death)
  Sender: FDA-Public Use
  Company Number: 2006JP004609

PATIENT
  Age: 51 Year
  Sex: Male

DRUGS (3)
  1. PROGRAF [Suspect]
     Indication: BONE MARROW TRANSPLANT
  2. CYCLOSPORINE [Concomitant]
  3. PREDNISOLONE [Concomitant]

REACTIONS (12)
  - ALLOGENIC BONE MARROW TRANSPLANTATION THERAPY [None]
  - BIOPSY COLON ABNORMAL [None]
  - COMPLICATIONS OF BONE MARROW TRANSPLANT [None]
  - CYTOMEGALOVIRUS INFECTION [None]
  - DIARRHOEA [None]
  - GENERAL PHYSICAL HEALTH DETERIORATION [None]
  - GRAFT VERSUS HOST DISEASE [None]
  - HEPATIC FUNCTION ABNORMAL [None]
  - RASH GENERALISED [None]
  - RENAL IMPAIRMENT [None]
  - THROMBOTIC MICROANGIOPATHY [None]
  - VENOOCCLUSIVE DISEASE [None]
